FAERS Safety Report 13113033 (Version 1)
Quarter: 2017Q1

REPORT INFORMATION
  Report Type: Spontaneous
  Country: US (occurrence: US)
  Receive Date: 20170113
  Receipt Date: 20170113
  Transmission Date: 20170428
  Serious: Yes (Hospitalization, Other)
  Sender: FDA-Public Use
  Company Number: US-009507513-1701USA005563

PATIENT
  Age: 44 Year

DRUGS (4)
  1. CYTOXAN [Suspect]
     Active Substance: CYCLOPHOSPHAMIDE
     Indication: PLASMA CELL MYELOMA
     Dosage: 350 MG/M2,DAYS 1-4
     Route: 042
     Dates: start: 20110815, end: 20110821
  2. DOXORUBICIN [Suspect]
     Active Substance: DOXORUBICIN
     Indication: PLASMA CELL MYELOMA
     Dosage: 9 MG/M2, DAYS 1-4
     Route: 042
     Dates: start: 20110815, end: 20110821
  3. DECADRON [Suspect]
     Active Substance: DEXAMETHASONE
     Indication: PLASMA CELL MYELOMA
     Dosage: 40 MG, PULSED
     Route: 048
     Dates: start: 20110815, end: 20110821
  4. ONCOVIN [Suspect]
     Active Substance: VINCRISTINE SULFATE
     Indication: PLASMA CELL MYELOMA
     Dosage: 0.4 MG,DAYS 1-4
     Route: 048
     Dates: start: 20110815, end: 20110821

REACTIONS (1)
  - Pneumonia [Recovered/Resolved]

NARRATIVE: CASE EVENT DATE: 20110822
